FAERS Safety Report 8580165-0 (Version None)
Quarter: 2012Q3

REPORT INFORMATION
  Report Type: 
  Country: None (occurrence: None)
  Receive Date: 20120808
  Receipt Date: 20120803
  Transmission Date: 20120928
  Serious: Yes (Hospitalization, Disabling, Other)
  Sender: FDA-Public Use
  Company Number: US-ALLERGAN-1210238US

PATIENT
  Age: 93 Year
  Sex: Female

DRUGS (8)
  1. ZOCOR [Concomitant]
  2. BOTULINUM TOXIN TYPE A [Suspect]
     Dosage: 200 UNITS, SINGLE
     Route: 030
     Dates: start: 20090730, end: 20090730
  3. TOPROL-XL [Concomitant]
     Indication: HYPERTENSION
  4. BOTULINUM TOXIN TYPE A [Suspect]
     Indication: TORTICOLLIS
     Dosage: 100 UNITS, SINGLE
     Route: 030
     Dates: start: 20090604, end: 20090604
  5. BOTULINUM TOXIN TYPE A [Suspect]
     Indication: MUSCLE SPASTICITY
  6. PLAVIX [Concomitant]
     Indication: CAROTID ARTERY STENOSIS
     Dosage: UNK
     Dates: start: 20060101
  7. BOTULINUM TOXIN TYPE A [Suspect]
     Indication: DYSTONIA
     Dosage: 275 UNITS, SINGLE
     Route: 030
     Dates: start: 20090916, end: 20090916
  8. BOTULINUM TOXIN TYPE A [Suspect]
     Indication: DROOLING
     Dosage: 370 UNITS, SINGLE
     Route: 030
     Dates: start: 20091217, end: 20091217

REACTIONS (4)
  - NEUROMYOPATHY [None]
  - PNEUMONIA [None]
  - DYSPHAGIA [None]
  - RESPIRATORY FAILURE [None]
